FAERS Safety Report 4534654-6 (Version None)
Quarter: 2004Q4

REPORT INFORMATION
  Report Type: 
  Country: None (occurrence: None)
  Receive Date: 20041214
  Receipt Date: 20040730
  Transmission Date: 20050328
  Serious: No
  Sender: FDA-Public Use
  Company Number: USA040774062

PATIENT
  Age: 61 Year
  Sex: Male

DRUGS (8)
  1. CIALIS [Suspect]
     Indication: ERECTILE DYSFUNCTION
     Dosage: 20 MG AS NEEDED
     Dates: start: 20040101
  2. MULTIVITAMIN [Concomitant]
  3. PROTEIN SHAKES [Concomitant]
  4. DIOVAN /SCH/ (VALSARTAN) [Concomitant]
  5. METOPROLOL [Concomitant]
  6. NORVASC [Concomitant]
  7. CHLORAZEPATE [Concomitant]
  8. DICYCLOVERINE [Concomitant]

REACTIONS (1)
  - FEELING ABNORMAL [None]
